FAERS Safety Report 11900977 (Version 1)
Quarter: 2016Q1

REPORT INFORMATION
  Report Type: Report from Study
  Country: US (occurrence: US)
  Receive Date: 20160108
  Receipt Date: 20160108
  Transmission Date: 20160526
  Serious: No
  Sender: FDA-Public Use
  Company Number: US-ABBVIE-15P-163-1437325-00

PATIENT
  Age: 66 Year
  Sex: Female
  Weight: 67.65 kg

DRUGS (1)
  1. VIEKIRA PAK [Suspect]
     Active Substance: DASABUVIR\OMBITASVIR\PARITAPREVIR\RITONAVIR
     Indication: HEPATITIS C
     Dosage: IN AM AND PM PER PACKAGE DOSING DIRECTION
     Route: 048
     Dates: start: 20150627

REACTIONS (4)
  - Decreased appetite [Unknown]
  - Fatigue [Unknown]
  - Balance disorder [Unknown]
  - Nausea [Unknown]

NARRATIVE: CASE EVENT DATE: 20150730
